FAERS Safety Report 24438246 (Version 1)
Quarter: 2024Q4

REPORT INFORMATION
  Report Type: Spontaneous
  Country: US (occurrence: None)
  Receive Date: 20241012
  Receipt Date: 20241012
  Transmission Date: 20250114
  Serious: Yes (Other)
  Sender: Public
  Company Number: None

PATIENT
  Sex: Female
  Weight: 72.45 kg

DRUGS (6)
  1. ZEPBOUND [Suspect]
     Active Substance: TIRZEPATIDE
     Indication: Weight decreased
     Dosage: OTHER QUANTITY : 1 INJECTION(S);?FREQUENCY : AS NEEDED;?OTHER ROUTE : SUBCUTANEOUS INJECTION;?
     Route: 050
     Dates: start: 20240919
  2. STRATTERA [Concomitant]
     Active Substance: ATOMOXETINE HYDROCHLORIDE
  3. CONCERTA [Concomitant]
     Active Substance: METHYLPHENIDATE HYDROCHLORIDE
  4. Fluoxetine rosuvostatin [Concomitant]
  5. ZEPBOUND [Concomitant]
     Active Substance: TIRZEPATIDE
  6. VITAMINS [Concomitant]
     Active Substance: VITAMINS

REACTIONS (4)
  - Influenza like illness [None]
  - Muscular weakness [None]
  - Paraesthesia [None]
  - Hypoaesthesia [None]
